FAERS Safety Report 4603781-7 (Version None)
Quarter: 2005Q1

REPORT INFORMATION
  Report Type: 
  Country: None (occurrence: None)
  Receive Date: 20050310
  Receipt Date: 20050202
  Transmission Date: 20050727
  Serious: Yes (Hospitalization)
  Sender: FDA-Public Use
  Company Number: FRWYE400304FEB05

PATIENT
  Sex: Female

DRUGS (6)
  1. ENBREL [Suspect]
     Indication: RHEUMATOID ARTHRITIS
     Dosage: UNKNOWN
     Route: 058
     Dates: start: 20040501, end: 20041101
  2. REMICADE [Suspect]
     Route: 042
     Dates: end: 20040401
  3. LANSOPRAZOLE [Concomitant]
     Dates: start: 20040501
  4. KETOPROFEN [Concomitant]
     Dates: start: 20040501
  5. CACIT [Concomitant]
     Dates: start: 20040501
  6. COLECALCIFEROL [Concomitant]
     Dates: start: 20040501

REACTIONS (1)
  - BREAST CANCER STAGE I [None]
